FAERS Safety Report 8351495-2 (Version None)
Quarter: 2012Q2

REPORT INFORMATION
  Report Type: 
  Country: None (occurrence: None)
  Receive Date: 20120510
  Receipt Date: 20120503
  Transmission Date: 20120825
  Serious: Yes (Other)
  Sender: FDA-Public Use
  Company Number: US-ABBOTT-12P-163-0932451-00

PATIENT
  Age: 46 Year
  Sex: Female

DRUGS (9)
  1. ZETIA [Concomitant]
     Indication: BLOOD CHOLESTEROL INCREASED
     Dosage: 10MG DAILY
  2. CELEBREX [Concomitant]
     Indication: PAIN
  3. PRAMIPEXOLE DIHYDROCHLORIDE [Concomitant]
     Indication: RESTLESS LEGS SYNDROME
     Dosage: 0.5MG DAILY
  4. PROTONICS [Concomitant]
     Indication: PRODUCT USED FOR UNKNOWN INDICATION
     Dosage: 40MG DAILY
  5. TRAMADOL HYDROCHLORIDE [Concomitant]
     Indication: PRODUCT USED FOR UNKNOWN INDICATION
     Dosage: 1-2 TABLETS THREE TIMES DAILY
  6. HYDROXYCHLOROQUINE [Concomitant]
     Indication: SYSTEMIC SCLEROSIS
  7. TRAZODONE HCL [Concomitant]
     Indication: INSOMNIA
     Dosage: 1-2MG AT BEDTIME
  8. HUMIRA [Suspect]
     Indication: ANKYLOSING SPONDYLITIS
     Dates: start: 20120404
  9. CLONAZEPAM [Concomitant]
     Indication: PRODUCT USED FOR UNKNOWN INDICATION
     Dosage: 1MG AT NIGHT

REACTIONS (3)
  - DRUG INEFFECTIVE [None]
  - OESOPHAGEAL STENOSIS [None]
  - NAUSEA [None]
